FAERS Safety Report 8317874-4 (Version None)
Quarter: 2012Q2

REPORT INFORMATION
  Report Type: 
  Country: None (occurrence: None)
  Receive Date: 20120427
  Receipt Date: 20120420
  Transmission Date: 20120825
  Serious: Yes (Death)
  Sender: FDA-Public Use
  Company Number: US-CELGENEUS-163-21880-12041459

PATIENT
  Sex: Male
  Weight: 77.09 kg

DRUGS (4)
  1. JANUVIA [Concomitant]
     Route: 065
  2. NEUPOGEN [Concomitant]
     Indication: NEUTROPENIA
     Dosage: 480 MICROGRAM
     Route: 058
     Dates: start: 20101005
  3. REVLIMID [Suspect]
     Indication: LYMPHOMA
     Dosage: 10 MILLIGRAM
     Route: 048
     Dates: start: 20111110
  4. NEULASTA [Concomitant]
     Indication: NEUTROPENIA
     Dosage: 6 MILLIGRAM
     Route: 058
     Dates: start: 20110703

REACTIONS (1)
  - NON-HODGKIN'S LYMPHOMA [None]
